FAERS Safety Report 10052902 (Version 2)
Quarter: 2015Q2

REPORT INFORMATION
  Report Type: Spontaneous
  Country: DK (occurrence: DK)
  Receive Date: 20140402
  Receipt Date: 20150402
  Transmission Date: 20150821
  Serious: Yes (Hospitalization)
  Sender: FDA-Public Use
  Company Number: DK-TEVA-471831ISR

PATIENT
  Sex: Male

DRUGS (4)
  1. ALOPAM [Concomitant]
     Active Substance: OXAZEPAM
  2. CIPRALEX [Suspect]
     Active Substance: ESCITALOPRAM OXALATE
     Indication: DEPRESSION
     Route: 065
     Dates: end: 20100322
  3. MODIODAL [Suspect]
     Active Substance: MODAFINIL
     Indication: FATIGUE
     Route: 065
     Dates: start: 20100209, end: 20100322
  4. CYMBALTA [Suspect]
     Active Substance: DULOXETINE HYDROCHLORIDE
     Indication: ANXIETY
     Route: 065

REACTIONS (16)
  - Myalgia [Unknown]
  - Restlessness [Unknown]
  - Hepatic failure [Unknown]
  - Muscle tightness [Unknown]
  - Tremor [Unknown]
  - Gait disturbance [Unknown]
  - Lethargy [Unknown]
  - Muscle contractions involuntary [Unknown]
  - Fatigue [Unknown]
  - Hypoaesthesia [Unknown]
  - Musculoskeletal stiffness [Unknown]
  - Motor dysfunction [Unknown]
  - Hepatic encephalopathy [Unknown]
  - Serotonin syndrome [Recovered/Resolved]
  - Depressed level of consciousness [Recovered/Resolved]
  - Muscle spasms [Unknown]
